FAERS Safety Report 22083033 (Version 4)
Quarter: 2024Q1

REPORT INFORMATION
  Report Type: Report from Study
  Country: DE (occurrence: DE)
  Receive Date: 20230310
  Receipt Date: 20240206
  Transmission Date: 20240410
  Serious: Yes (Hospitalization)
  Sender: FDA-Public Use
  Company Number: DE-002147023-NVSC2023DE054368

PATIENT
  Sex: Female
  Weight: 75 kg

DRUGS (2)
  1. MAYZENT [Suspect]
     Active Substance: SIPONIMOD
     Indication: Secondary progressive multiple sclerosis
     Dosage: 2 MG, QD (MAINTENANCE DOSAGE)
     Route: 048
     Dates: start: 20220825
  2. OXYCODONE [Concomitant]
     Active Substance: OXYCODONE\OXYCODONE HYDROCHLORIDE
     Indication: Neuralgia
     Dosage: 2.5 MG, QD
     Route: 048
     Dates: start: 202211, end: 202211

REACTIONS (3)
  - Syncope [Recovered/Resolved]
  - Post herpetic neuralgia [Not Recovered/Not Resolved]
  - Varicella zoster virus infection [Unknown]

NARRATIVE: CASE EVENT DATE: 20221126
